FAERS Safety Report 19772472 (Version 1)
Quarter: 2021Q3

REPORT INFORMATION
  Report Type: Spontaneous
  Country: US (occurrence: US)
  Receive Date: 20210830
  Receipt Date: 20210830
  Transmission Date: 20211014
  Serious: No
  Sender: FDA-Public Use
  Company Number: None

PATIENT
  Age: 53 Year
  Sex: Female

DRUGS (1)
  1. H.P. ACTHAR [Suspect]
     Active Substance: CORTICOTROPIN
     Dosage: ?          OTHER STRENGTH:80U/ML;?
     Route: 058
     Dates: start: 2020

REACTIONS (2)
  - Contusion [None]
  - Road traffic accident [None]

NARRATIVE: CASE EVENT DATE: 20210812
